FAERS Safety Report 7199700 (Version 4)
Quarter: 2013Q3

REPORT INFORMATION
  Report Type: Spontaneous
  Country: US (occurrence: US)
  Receive Date: 20091204
  Receipt Date: 20130718
  Transmission Date: 20140515
  Serious: Yes (Hospitalization)
  Sender: FDA-Public Use
  Company Number: US-JNJFOC-20091107172

PATIENT
  Age: 43 Year
  Sex: Female
  Weight: 61.24 kg

DRUGS (2)
  1. REMICADE [Suspect]
     Indication: COLITIS ULCERATIVE
     Route: 042
     Dates: start: 20091105
  2. PREDNISONE [Concomitant]

REACTIONS (9)
  - Polyarthritis [Recovered/Resolved]
  - Joint effusion [Recovered/Resolved]
  - Pain [Recovering/Resolving]
  - Hypersensitivity [Unknown]
  - Hypokalaemia [Recovered/Resolved]
  - Malaise [Unknown]
  - Vomiting [Unknown]
  - Cough [Unknown]
  - Nausea [Unknown]
